FAERS Safety Report 9126059 (Version 2)
Quarter: 2014Q1

REPORT INFORMATION
  Report Type: Spontaneous
  Country: US (occurrence: US)
  Receive Date: 20130117
  Receipt Date: 20140110
  Transmission Date: 20141002
  Serious: Yes (Hospitalization, Disabling, Other)
  Sender: FDA-Public Use
  Company Number: US-009507513-1301USA005866

PATIENT
  Sex: Male

DRUGS (1)
  1. PROPECIA [Suspect]
     Indication: ALOPECIA
     Dosage: 1 MG, UNK
     Route: 048
     Dates: start: 20050514

REACTIONS (6)
  - Emotional distress [Unknown]
  - Colectomy [Unknown]
  - Anxiety [Unknown]
  - Sexual dysfunction [Unknown]
  - Marital problem [Unknown]
  - Erectile dysfunction [Not Recovered/Not Resolved]
